FAERS Safety Report 4796354-7 (Version None)
Quarter: 2005Q4

REPORT INFORMATION
  Report Type: 
  Country: None (occurrence: None)
  Receive Date: 20051007
  Receipt Date: 20050927
  Transmission Date: 20060501
  Serious: Yes (Other)
  Sender: FDA-Public Use
  Company Number: FRWYE762721JUN05

PATIENT
  Age: 63 Year
  Sex: Male

DRUGS (9)
  1. EFFEXOR [Suspect]
     Indication: BIPOLAR I DISORDER
     Dosage: 50 MG 2X PER 1 DAY; ORAL
     Route: 048
     Dates: start: 20030101, end: 20050101
  2. EFFEXOR [Suspect]
     Dosage: ORAL
     Route: 048
  3. CHIBRO-PROSCAR (FINASTERIDE, , 0) [Suspect]
     Dosage: ORAL
     Route: 048
     Dates: start: 20050101, end: 20050101
  4. DEPAKINE CHRONO (VALPROATE SODIUM/VALPROIC ACID, , 0) [Suspect]
     Dosage: 100 MG 1X PER 1 DAY; ORAL
     Route: 048
     Dates: start: 20030101, end: 20050101
  5. DEPAKINE CHRONO (VALPROATE SODIUM/VALPROIC ACID, , 0) [Suspect]
     Dosage: ORAL
     Route: 048
     Dates: start: 20030101, end: 20050101
  6. EZETROL (EZETIMIBE, , 0) [Suspect]
     Dosage: ORAL
     Route: 048
     Dates: start: 20050101, end: 20050101
  7. DILTIAZEM HYDROCHLORIDE [Concomitant]
  8. KARDEGIC (ACETYLSALICYLATE LYSINE ) [Concomitant]
  9. JOSIR (TAMSULOSIN HYDROCHLORIDE ) [Concomitant]

REACTIONS (4)
  - ABDOMINAL PAIN UPPER [None]
  - ALANINE AMINOTRANSFERASE INCREASED [None]
  - BLOOD ALKALINE PHOSPHATASE INCREASED [None]
  - GAMMA-GLUTAMYLTRANSFERASE INCREASED [None]
